FAERS Safety Report 9603407 (Version 1)
Quarter: 2013Q4

REPORT INFORMATION
  Report Type: Spontaneous
  Country: BR (occurrence: BR)
  Receive Date: 20131007
  Receipt Date: 20131007
  Transmission Date: 20140711
  Serious: Yes (Other)
  Sender: FDA-Public Use
  Company Number: BR-PFIZER INC-2013283596

PATIENT
  Age: 59 Year
  Sex: Male
  Weight: 92 kg

DRUGS (6)
  1. LYRICA [Suspect]
     Indication: SPINAL DISORDER
     Dosage: UNK
  2. AMITRIPTYLINE HYDROCHLORIDE [Concomitant]
  3. INSULIN [Concomitant]
  4. LOSARTAN [Concomitant]
  5. OMEPRAZOLE [Concomitant]
  6. ATORVASTATIN CALCIUM [Concomitant]

REACTIONS (4)
  - Off label use [Not Recovered/Not Resolved]
  - Spinal disorder [Unknown]
  - Diabetic foot [Unknown]
  - Prosthesis user [Not Recovered/Not Resolved]
